FAERS Safety Report 4925305-7 (Version None)
Quarter: 2006Q1

REPORT INFORMATION
  Report Type: 
  Country: None (occurrence: None)
  Receive Date: 20060228
  Receipt Date: 20060216
  Transmission Date: 20060701
  Serious: Yes (Hospitalization)
  Sender: FDA-Public Use
  Company Number: FR-GLAXOSMITHKLINE-B0413300A

PATIENT
  Age: 74 Year
  Sex: Female

DRUGS (1)
  1. AUGMENTIN [Suspect]
     Indication: BRONCHITIS
     Route: 048
     Dates: start: 20060201, end: 20060203

REACTIONS (6)
  - GLOMERULAR FILTRATION RATE DECREASED [None]
  - HAEMATURIA [None]
  - NEPHRITIS INTERSTITIAL [None]
  - OLIGURIA [None]
  - RENAL FAILURE ACUTE [None]
  - TYPE IV HYPERSENSITIVITY REACTION [None]
